FAERS Safety Report 4860947-9 (Version None)
Quarter: 2005Q4

REPORT INFORMATION
  Report Type: 
  Country: None (occurrence: None)
  Receive Date: 20051220
  Receipt Date: 20051209
  Transmission Date: 20060501
  Serious: Yes (Other)
  Sender: FDA-Public Use
  Company Number: CA-BRISTOL-MYERS SQUIBB COMPANY-13218888

PATIENT
  Age: 78 Year
  Sex: Male

DRUGS (13)
  1. TEQUIN [Suspect]
  2. ARANESP [Concomitant]
     Route: 058
  3. ATENOLOL [Concomitant]
     Route: 048
  4. ATROVENT [Concomitant]
     Route: 055
  5. DILAUDID [Concomitant]
     Route: 042
  6. FUROSEMIDE [Concomitant]
     Route: 042
  7. INSULIN [Concomitant]
  8. METOCLOPRAMIDE [Concomitant]
     Route: 042
  9. MIDAZOLAM [Concomitant]
     Route: 042
  10. MORPHINE [Concomitant]
     Route: 042
  11. NORVASC [Concomitant]
  12. RANITIDINE [Concomitant]
     Route: 048
  13. VENTOLIN [Concomitant]
     Route: 055

REACTIONS (1)
  - HYPOGLYCAEMIA [None]
